FAERS Safety Report 8338646-0 (Version None)
Quarter: 2012Q2

REPORT INFORMATION
  Report Type: 
  Country: None (occurrence: None)
  Receive Date: 20120504
  Receipt Date: 20120503
  Transmission Date: 20120825
  Serious: No
  Sender: FDA-Public Use
  Company Number: US-PFIZER INC-2012109239

PATIENT
  Sex: Female
  Weight: 74.83 kg

DRUGS (7)
  1. GABAPENTIN [Concomitant]
     Indication: FIBROMYALGIA
     Dosage: 600 MG, 4X/DAY
     Route: 048
  2. LEVOTHYROXINE [Concomitant]
     Indication: THYROID DISORDER
     Dosage: 25 UG, DAILY
  3. MEPERIDINE HCL [Concomitant]
     Indication: PAIN
     Dosage: 50 MG, 3X/DAY
  4. VENLAFAXINE HCL [Suspect]
     Indication: PAIN
  5. TRAZODONE [Concomitant]
     Indication: PAIN
     Dosage: 50 MG, 3X/DAY
     Route: 048
  6. PANTOPRAZOLE [Concomitant]
     Indication: GASTROOESOPHAGEAL REFLUX DISEASE
     Dosage: 40 MG, DAILY
  7. VENLAFAXINE HCL [Suspect]
     Indication: DEPRESSION
     Dosage: 150 MG, 2X/DAY
     Dates: start: 20120101

REACTIONS (2)
  - FEELING HOT [None]
  - HYPERHIDROSIS [None]
